FAERS Safety Report 18618139 (Version 1)
Quarter: 2020Q4

REPORT INFORMATION
  Report Type: Spontaneous
  Country: US (occurrence: US)
  Receive Date: 20201210
  Receipt Date: 20201210
  Transmission Date: 20210114
  Serious: Yes (Hospitalization)
  Sender: FDA-Public Use
  Company Number: None

PATIENT
  Age: 69 Year
  Sex: Male
  Weight: 82.6 kg

DRUGS (2)
  1. TOCILIZUMAB. [Suspect]
     Active Substance: TOCILIZUMAB
  2. YESCARTA [Suspect]
     Active Substance: AXICABTAGENE CILOLEUCEL

REACTIONS (12)
  - Intention tremor [None]
  - Hypertension [None]
  - Altered state of consciousness [None]
  - Infusion site oedema [None]
  - Cytokine release syndrome [None]
  - Pyrexia [None]
  - Serum ferritin increased [None]
  - Oxygen saturation decreased [None]
  - Deep vein thrombosis [None]
  - Fatigue [None]
  - Neurotoxicity [None]
  - Memory impairment [None]

NARRATIVE: CASE EVENT DATE: 20200217
